FAERS Safety Report 9157750 (Version 2)
Quarter: 2013Q1

REPORT INFORMATION
  Report Type: Spontaneous
  Country: FR (occurrence: FR)
  Receive Date: 20130312
  Receipt Date: 20130322
  Transmission Date: 20140127
  Serious: Yes (Other)
  Sender: FDA-Public Use
  Company Number: FR-PFIZER INC-2013080414

PATIENT
  Age: 3 Year
  Sex: Female

DRUGS (2)
  1. PHENYTOIN SODIUM [Suspect]
     Indication: STATUS EPILEPTICUS
     Dosage: 3 SUBSEQUENTLY INJECTIONS OF 20MG/KG
  2. VALPROATE SODIUM [Concomitant]
     Indication: STATUS EPILEPTICUS

REACTIONS (5)
  - Overdose [Unknown]
  - Toxicity to various agents [Unknown]
  - Central nervous system lesion [Unknown]
  - Nystagmus [Recovered/Resolved]
  - Haemodynamic test abnormal [Unknown]
